FAERS Safety Report 20098867 (Version 1)
Quarter: 2021Q4

REPORT INFORMATION
  Report Type: Spontaneous
  Country: US (occurrence: US)
  Receive Date: 20211122
  Receipt Date: 20211122
  Transmission Date: 20220303
  Serious: Yes (Other)
  Sender: FDA-Public Use
  Company Number: US-PFIZER INC-2021619669

PATIENT
  Age: 72 Year
  Sex: Male

DRUGS (1)
  1. VYNDAMAX [Suspect]
     Active Substance: TAFAMIDIS
     Dosage: 61 MG

REACTIONS (6)
  - Cardiomyopathy [Unknown]
  - Chronic kidney disease [Unknown]
  - Pulmonary mass [Unknown]
  - Protein urine present [Unknown]
  - Atrial flutter [Unknown]
  - Glomerular filtration rate decreased [Unknown]
